FAERS Safety Report 14332277 (Version 1)
Quarter: 2017Q4

REPORT INFORMATION
  Report Type: Spontaneous
  Country: US (occurrence: US)
  Receive Date: 20171228
  Receipt Date: 20171228
  Transmission Date: 20180321
  Serious: No
  Sender: FDA-Public Use
  Company Number: US-B.I. PHARMACEUTICALS,INC./RIDGEFIELD-2017-BI-068028

PATIENT
  Age: 76 Year
  Sex: Female

DRUGS (5)
  1. MENEST [Concomitant]
     Active Substance: ESTROGENS, ESTERIFIED
     Indication: MENOPAUSE
     Dosage: THREE TO FOUR TIMES WEEKLY;  FORMULATION: TABLET;
     Route: 048
  2. SPIRIVA [Suspect]
     Active Substance: TIOTROPIUM BROMIDE MONOHYDRATE
     Indication: CHRONIC OBSTRUCTIVE PULMONARY DISEASE
     Dosage: ADMINISTRATION CORRECT? YES ?ACTION(S) TAKEN WITH PRODUCT: DOSE NOT CHANGED
     Route: 055
     Dates: start: 201507
  3. SINGULAIR [Concomitant]
     Active Substance: MONTELUKAST SODIUM
     Indication: ASTHMA
     Dosage: ONCE DAILY;  FORM STRENGTH: 10MG; FORMULATION: TABLET
     Route: 048
  4. VENTOLIN [Concomitant]
     Active Substance: ALBUTEROL SULFATE
     Indication: ASTHMA
     Dosage: AS NEEDED;
     Route: 055
  5. DIGITEK [Concomitant]
     Active Substance: DIGOXIN
     Indication: ATRIAL FIBRILLATION
     Dosage: ONCE DAILY;  FORM STRENGTH: 125MCG; FORMULATION: TABLET
     Route: 048

REACTIONS (5)
  - Chromaturia [Recovered/Resolved]
  - Chromaturia [Recovered/Resolved]
  - Dyspnoea [Not Recovered/Not Resolved]
  - Dry mouth [Recovered/Resolved]
  - Pulmonary pain [Not Recovered/Not Resolved]

NARRATIVE: CASE EVENT DATE: 20171215
